FAERS Safety Report 16767103 (Version 2)
Quarter: 2019Q3

REPORT INFORMATION
  Report Type: Spontaneous
  Country: US (occurrence: US)
  Receive Date: 20190903
  Receipt Date: 20190909
  Transmission Date: 20191005
  Serious: No
  Sender: FDA-Public Use
  Company Number: US-PFIZER INC-2019373487

PATIENT
  Age: 55 Year
  Sex: Female
  Weight: 136 kg

DRUGS (1)
  1. VERAPAMIL HCL [Suspect]
     Active Substance: VERAPAMIL HYDROCHLORIDE
     Indication: BLOOD PRESSURE ABNORMAL
     Dosage: 240 MG, UNK

REACTIONS (2)
  - Pre-existing condition improved [Unknown]
  - Therapeutic response unexpected [Unknown]
